FAERS Safety Report 4684915-5 (Version None)
Quarter: 2005Q2

REPORT INFORMATION
  Report Type: 
  Country: None (occurrence: None)
  Receive Date: 20050606
  Receipt Date: 20050606
  Transmission Date: 20051028
  Serious: Yes (Hospitalization)
  Sender: FDA-Public Use
  Company Number: None

PATIENT
  Age: 71 Year
  Sex: Male

DRUGS (14)
  1. COUMADIN [Suspect]
     Dosage: 5 MG QD
  2. K-DUR 10 [Suspect]
  3. FESO4 [Concomitant]
  4. PROTONIX [Concomitant]
  5. VASOTEC [Concomitant]
  6. BACTRIM [Concomitant]
  7. KEFLEX [Concomitant]
  8. ASCORBIC ACID [Concomitant]
  9. NEURONTIN [Concomitant]
  10. DIFLUCAN [Concomitant]
  11. ELAVIL [Concomitant]
  12. REGLAN [Concomitant]
  13. LASIX [Concomitant]
  14. K-DUR 10 [Concomitant]

REACTIONS (2)
  - BLOOD POTASSIUM INCREASED [None]
  - INTERNATIONAL NORMALISED RATIO INCREASED [None]
